FAERS Safety Report 12420666 (Version 1)
Quarter: 2016Q2

REPORT INFORMATION
  Report Type: Spontaneous
  Country: CH (occurrence: CH)
  Receive Date: 20160531
  Receipt Date: 20160531
  Transmission Date: 20160815
  Serious: Yes (Hospitalization, Other)
  Sender: FDA-Public Use
  Company Number: CH-SUPERNUS PHARMACEUTICALS, INC.-2016SUP00106

PATIENT
  Age: 57 Year
  Sex: Male

DRUGS (13)
  1. CLONAZEPAM. [Concomitant]
     Active Substance: CLONAZEPAM
  2. IBUPROFEN. [Suspect]
     Active Substance: IBUPROFEN
     Route: 065
  3. ALLOPURINOL. [Concomitant]
     Active Substance: ALLOPURINOL
  4. ESOMEPRAZOLE [Concomitant]
     Active Substance: ESOMEPRAZOLE
  5. METFORMIN [Concomitant]
     Active Substance: METFORMIN HYDROCHLORIDE
  6. MEFENAMIC ACID. [Suspect]
     Active Substance: MEFENAMIC ACID
     Route: 065
  7. TORASEMIDE [Suspect]
     Active Substance: TORSEMIDE
     Route: 065
  8. TOPIRAMATE. [Suspect]
     Active Substance: TOPIRAMATE
     Indication: ESSENTIAL TREMOR
     Dosage: 25 MG, 1X/DAY
     Route: 065
  9. TOPIRAMATE. [Suspect]
     Active Substance: TOPIRAMATE
     Dosage: 50 MG, 2X/DAY
     Route: 065
  10. HYDROCHLOROTHIAZIDE. [Suspect]
     Active Substance: HYDROCHLOROTHIAZIDE
     Route: 065
  11. CITALOPRAM [Concomitant]
     Active Substance: CITALOPRAM HYDROBROMIDE
  12. PROPRANOLOL [Concomitant]
     Active Substance: PROPRANOLOL\PROPRANOLOL HYDROCHLORIDE
  13. LOSARTAN. [Suspect]
     Active Substance: LOSARTAN
     Route: 065

REACTIONS (5)
  - Coma [Recovered/Resolved]
  - Heat stroke [Recovered/Resolved]
  - Ventricular extrasystoles [Recovered/Resolved]
  - Shock [Recovered/Resolved]
  - Multiple organ dysfunction syndrome [Recovered/Resolved]
